FAERS Safety Report 21147907 (Version 1)
Quarter: 2022Q3

REPORT INFORMATION
  Report Type: Spontaneous
  Country: US (occurrence: None)
  Receive Date: 20220729
  Receipt Date: 20220729
  Transmission Date: 20221027
  Serious: No
  Sender: FDA-Public Use
  Company Number: 2022A257028

PATIENT
  Age: 887 Month
  Sex: Female
  Weight: 72.6 kg

DRUGS (3)
  1. TAGRISSO [Suspect]
     Active Substance: OSIMERTINIB
     Indication: Lung neoplasm malignant
     Route: 065
     Dates: start: 20220401
  2. TAGRISSO [Suspect]
     Active Substance: OSIMERTINIB
     Indication: EGFR gene mutation
     Route: 065
     Dates: start: 20220401
  3. AMINO ACIDS SUPPLEMENTS [Concomitant]

REACTIONS (3)
  - Pain in extremity [Unknown]
  - Skin atrophy [Unknown]
  - Weight decreased [Unknown]

NARRATIVE: CASE EVENT DATE: 20220401
